FAERS Safety Report 8837633 (Version 1)
Quarter: 2012Q4

REPORT INFORMATION
  Report Type: 
  Country: US (occurrence: US)
  Receive Date: 20121012
  Receipt Date: 20121012
  Transmission Date: 20130627
  Serious: Yes (Other)
  Sender: FDA-Public Use
  Company Number: US-ROCHE-1139517

PATIENT
  Sex: Female
  Weight: 42.45 kg

DRUGS (5)
  1. PROTROPIN [Suspect]
     Indication: HYPOTHYROIDISM
     Route: 058
  2. PROTROPIN [Suspect]
     Indication: TURNER^S SYNDROME
     Route: 065
  3. SYNTHROID [Concomitant]
     Route: 065
  4. PREMARIN [Concomitant]
     Route: 065
  5. SELDANE [Concomitant]
     Route: 065

REACTIONS (4)
  - Oedema peripheral [Unknown]
  - Cellulitis [Unknown]
  - Melanocytic naevus [Unknown]
  - Oedema peripheral [Unknown]
